FAERS Safety Report 8069338-3 (Version None)
Quarter: 2012Q1

REPORT INFORMATION
  Report Type: 
  Country: None (occurrence: None)
  Receive Date: 20120125
  Receipt Date: 20120124
  Transmission Date: 20120608
  Serious: Yes (Hospitalization, Other)
  Sender: FDA-Public Use
  Company Number: US-AMGEN-USASP2011026016

PATIENT
  Age: 46 Year
  Sex: Female

DRUGS (3)
  1. NPLATE [Suspect]
     Indication: IDIOPATHIC THROMBOCYTOPENIC PURPURA
     Dates: start: 20110321
  2. NPLATE [Suspect]
     Indication: AUTOIMMUNE DISORDER
  3. CORTICOSTEROIDS [Concomitant]

REACTIONS (10)
  - MEGAKARYOCYTES ABNORMAL [None]
  - HOSPITALISATION [None]
  - PLATELET COUNT DECREASED [None]
  - ANISOCYTOSIS [None]
  - ANAEMIA [None]
  - MARROW HYPERPLASIA [None]
  - HAEMATOCRIT DECREASED [None]
  - POLYCHROMASIA [None]
  - HAEMOGLOBIN DECREASED [None]
  - BONE MARROW RETICULIN FIBROSIS [None]
